FAERS Safety Report 8903320 (Version 2)
Quarter: 2012Q4

REPORT INFORMATION
  Report Type: 
  Country: BR (occurrence: BR)
  Receive Date: 20121112
  Receipt Date: 20121225
  Transmission Date: 20130627
  Serious: Yes (Hospitalization)
  Sender: FDA-Public Use
  Company Number: BR-AMGEN-BRASP2012036092

PATIENT
  Age: 48 Year
  Sex: Female
  Weight: 82 kg

DRUGS (6)
  1. ENBREL [Suspect]
     Indication: RHEUMATOID ARTHRITIS
     Dosage: 50 mg, 1x/week
     Route: 058
     Dates: start: 20120429
  2. ENBREL [Suspect]
     Dosage: UNK
     Dates: start: 20121018
  3. METHOTREXATE [Concomitant]
     Dosage: 8 tablets once weekly
     Dates: start: 2008
  4. PREDNISONE [Concomitant]
     Dosage: 0.25 mg, 1x/day
  5. ISONIAZID [Concomitant]
     Indication: ANTIBIOTIC PROPHYLAXIS
     Dosage: Three tablets once daily
  6. ISONIAZID [Concomitant]
     Indication: ANTIBIOTIC PROPHYLAXIS

REACTIONS (14)
  - Cerebrovascular accident [Recovered/Resolved]
  - Pneumonia [Recovered/Resolved]
  - Drug ineffective [Unknown]
  - Arthralgia [Unknown]
  - Pain in extremity [Unknown]
  - Feeling cold [Unknown]
  - Dyspnoea [Unknown]
  - Wrong technique in drug usage process [Recovered/Resolved]
  - Injection site mass [Recovered/Resolved]
  - Influenza [Recovered/Resolved]
  - Chest pain [Unknown]
  - Injection site pruritus [Recovered/Resolved]
  - Injection site erythema [Recovered/Resolved]
  - Injection site warmth [Recovered/Resolved]
